FAERS Safety Report 12772781 (Version 1)
Quarter: 2016Q3

REPORT INFORMATION
  Report Type: Spontaneous
  Country: CN (occurrence: CN)
  Receive Date: 20160922
  Receipt Date: 20160922
  Transmission Date: 20161109
  Serious: Yes (Hospitalization, Other)
  Sender: FDA-Public Use
  Company Number: CN-ELI_LILLY_AND_COMPANY-CN201609006424

PATIENT
  Age: 81 Year
  Sex: Female
  Weight: 55 kg

DRUGS (3)
  1. HUMALOG MIX75/25 [Suspect]
     Active Substance: INSULIN LISPRO
     Indication: DIABETES MELLITUS
     Dosage: 14 U, BID
     Route: 058
     Dates: start: 2012
  2. LACIDIPINE [Concomitant]
     Active Substance: LACIDIPINE
     Indication: HYPERTENSION
  3. HUMALOG MIX75/25 [Suspect]
     Active Substance: INSULIN LISPRO
     Dosage: 14 U, BID
     Route: 058

REACTIONS (3)
  - Hypertension [Unknown]
  - Blood glucose abnormal [Unknown]
  - Coronary artery disease [Unknown]
